FAERS Safety Report 7905505-4 (Version None)
Quarter: 2011Q4

REPORT INFORMATION
  Report Type: 
  Country: None (occurrence: None)
  Receive Date: 20111110
  Receipt Date: 20111102
  Transmission Date: 20120403
  Serious: No
  Sender: FDA-Public Use
  Company Number: US-BIOGENIDEC-2011BI016623

PATIENT
  Age: 65 Year
  Sex: Female

DRUGS (2)
  1. BETASERON [Concomitant]
     Indication: MULTIPLE SCLEROSIS
  2. TYSABRI [Suspect]
     Indication: MULTIPLE SCLEROSIS
     Route: 042
     Dates: start: 20100225

REACTIONS (7)
  - PANIC ATTACK [None]
  - MYALGIA [None]
  - DYSKINESIA [None]
  - DYSPNOEA [None]
  - INSOMNIA [None]
  - ARTHRALGIA [None]
  - COUGH [None]
